FAERS Safety Report 10940258 (Version 2)
Quarter: 2015Q2

REPORT INFORMATION
  Report Type: Spontaneous
  Country: US (occurrence: US)
  Receive Date: 20150322
  Receipt Date: 20150525
  Transmission Date: 20150821
  Serious: No
  Sender: FDA-Public Use
  Company Number: US-JNJFOC-20140501764

PATIENT
  Sex: Female

DRUGS (2)
  1. NUCYNTA ER [Suspect]
     Active Substance: TAPENTADOL HYDROCHLORIDE
     Indication: PRODUCT USED FOR UNKNOWN INDICATION
     Dosage: 100MG FOUR TIMES PER DAY
     Route: 048
     Dates: start: 2013
  2. NUCYNTA ER [Suspect]
     Active Substance: TAPENTADOL HYDROCHLORIDE
     Indication: PRODUCT USED FOR UNKNOWN INDICATION
     Dosage: 100MG EVERY 12 HOURS
     Route: 048
     Dates: start: 2013

REACTIONS (2)
  - Drug administration error [Unknown]
  - Product packaging issue [Unknown]

NARRATIVE: CASE EVENT DATE: 2013
